FAERS Safety Report 4368727-8 (Version None)
Quarter: 2004Q2

REPORT INFORMATION
  Report Type: 
  Country: None (occurrence: None)
  Receive Date: 20040528
  Receipt Date: 20040519
  Transmission Date: 20050107
  Serious: No
  Sender: FDA-Public Use
  Company Number: 04P-229-0261377-00

PATIENT
  Sex: Male

DRUGS (1)
  1. BIAXIN [Suspect]

REACTIONS (3)
  - ANXIETY [None]
  - MENTAL DISORDER [None]
  - PARANOIA [None]
